FAERS Safety Report 19244742 (Version 1)
Quarter: 2021Q2

REPORT INFORMATION
  Report Type: Report from Study
  Country: US (occurrence: US)
  Receive Date: 20210511
  Receipt Date: 20210511
  Transmission Date: 20210717
  Serious: Yes (Hospitalization)
  Sender: FDA-Public Use
  Company Number: US-BAUSCH-BL-2021-015324

PATIENT
  Age: 50 Year
  Sex: Female

DRUGS (1)
  1. TRULANCE [Suspect]
     Active Substance: PLECANATIDE
     Indication: PRODUCT USED FOR UNKNOWN INDICATION
     Route: 065
     Dates: end: 202104

REACTIONS (5)
  - Kidney infection [Unknown]
  - Pyrexia [Unknown]
  - Product supply issue [Unknown]
  - Therapy interrupted [Unknown]
  - Escherichia infection [Unknown]

NARRATIVE: CASE EVENT DATE: 202104
